FAERS Safety Report 15337271 (Version 1)
Quarter: 2018Q3

REPORT INFORMATION
  Report Type: Report from Study
  Country: None (occurrence: BR)
  Receive Date: 20180831
  Receipt Date: 20180831
  Transmission Date: 20181010
  Serious: Yes (Hospitalization, Other)
  Sender: FDA-Public Use
  Company Number: BR-ABBVIE-18K-020-2464844-00

PATIENT
  Age: 47 Year
  Sex: Female
  Weight: 57 kg

DRUGS (4)
  1. METICORTEN [Concomitant]
     Active Substance: PREDNISONE
     Indication: ARTHRITIS
  2. HUMIRA [Suspect]
     Active Substance: ADALIMUMAB
     Indication: RHEUMATOID ARTHRITIS
     Route: 058
     Dates: start: 20161124
  3. TECNOMET [Concomitant]
     Active Substance: METHOTREXATE
     Indication: ARTHRITIS
     Dosage: ONCE WEEKLY
  4. REUQUINOL [Concomitant]
     Active Substance: HYDROXYCHLOROQUINE SULFATE
     Indication: ARTHRITIS

REACTIONS (6)
  - Venous occlusion [Unknown]
  - Headache [Recovered/Resolved]
  - Arthritis [Unknown]
  - Blood pressure increased [Not Recovered/Not Resolved]
  - Vomiting [Recovered/Resolved]
  - Product administered at inappropriate site [Unknown]

NARRATIVE: CASE EVENT DATE: 201805
